FAERS Safety Report 11226339 (Version 1)
Quarter: 2015Q2

REPORT INFORMATION
  Report Type: Other
  Country: GB (occurrence: GB)
  Receive Date: 20150629
  Receipt Date: 20150629
  Transmission Date: 20150821
  Serious: Yes (Hospitalization)
  Sender: FDA-Public Use
  Company Number: GB-MYLANLABS-2015M1020586

PATIENT

DRUGS (29)
  1. BECONASE AQ [Concomitant]
     Active Substance: BECLOMETHASONE DIPROPIONATE MONOHYDRATE
     Indication: SEASONAL ALLERGY
     Dosage: 2 DF, BID (TO EACH NOSTRIL.)
     Dates: start: 20140813
  2. SERTRALINE [Concomitant]
     Active Substance: SERTRALINE HYDROCHLORIDE
     Indication: DEPRESSION
     Dosage: 50 MG, QD
     Dates: start: 20140813
  3. SENNA [Concomitant]
     Active Substance: SENNA LEAF\SENNOSIDES\SENNOSIDES A AND B
     Dosage: 1 OR 2 AT NIGHT WHEN REQUIRED.
     Dates: start: 20140813
  4. SANDO-K [Concomitant]
     Active Substance: POTASSIUM BICARBONATE\POTASSIUM CHLORIDE
     Dosage: 1 DF, BID
     Dates: start: 20150528
  5. PARACETAMOL [Concomitant]
     Active Substance: ACETAMINOPHEN
     Indication: PAIN
     Dosage: TAKE ONE OR TWO TABLETS FOUR TIMES A DAY (NOT EVERYDAY) WHEN REQUIRED
     Dates: start: 20140813
  6. HYPROMELLOSE [Concomitant]
     Active Substance: HYPROMELLOSES
     Indication: DRY EYE
     Dosage: AS NEEDED TO EACH EYE
     Dates: start: 20140813
  7. HYDROXYCHLOROQUINE [Concomitant]
     Active Substance: HYDROXYCHLOROQUINE
     Indication: ARTHRITIS
     Dosage: 200 MG, BID
     Dates: start: 20140813
  8. MEPTAZINOL [Concomitant]
     Dosage: 200 MG, QID
     Dates: start: 20150528
  9. VENTOLIN [Concomitant]
     Active Substance: ALBUTEROL SULFATE
     Dosage: 2 DF, PRN (2 PUFFS WHEN REQUIRED)
     Route: 055
     Dates: start: 20140813
  10. SODIUM CHLORIDE. [Concomitant]
     Active Substance: SODIUM CHLORIDE
     Dosage: 2 DF, BID
     Route: 055
     Dates: start: 20140813
  11. TOPIRAMATE. [Concomitant]
     Active Substance: TOPIRAMATE
     Dosage: 25 MG, BID
     Dates: start: 20150528
  12. CLARITHROMYCIN. [Suspect]
     Active Substance: CLARITHROMYCIN
     Indication: ASTHMA
     Dosage: 500 MG, QD
     Route: 048
     Dates: start: 201410, end: 20150416
  13. PREDNISOLONE. [Interacting]
     Active Substance: PREDNISOLONE
     Indication: ASTHMA
     Dosage: 9 MG, UNK (ORIGINAL DOSE PRESCRIBED WAS REDUCED.)
     Dates: start: 201410
  14. LORATADINE. [Concomitant]
     Active Substance: LORATADINE
     Indication: SEASONAL ALLERGY
     Dosage: 10 MG, UNK (WHEN REQUIRED)
     Dates: start: 20140813
  15. ESOMEPRAZOLE [Concomitant]
     Active Substance: ESOMEPRAZOLE
     Dosage: 40 MG, QD
     Dates: start: 20140813
  16. ONDANSETRON [Concomitant]
     Active Substance: ONDANSETRON
     Dosage: 4 MG, TID
     Dates: start: 20140818
  17. SALIVA [Concomitant]
     Indication: DRY MOUTH
     Dosage: USE AS DIRECTED.
     Dates: start: 20140813
  18. CLARITHROMYCIN. [Interacting]
     Active Substance: CLARITHROMYCIN
     Dosage: 250 MG, QD (HALVED ON 16TH APRIL 2015.)
     Route: 048
     Dates: start: 20150416
  19. NAVISPARE [Concomitant]
     Indication: HYPERALDOSTERONISM
     Dosage: 1 DF, QD
     Dates: start: 20140813
  20. ADCAL-D3 [Concomitant]
     Active Substance: CALCIUM CARBONATE\CHOLECALCIFEROL
     Dosage: 2 DF, QD
     Dates: start: 20150528
  21. VENTOLIN [Concomitant]
     Active Substance: ALBUTEROL SULFATE
     Indication: ASTHMA
     Dosage: INHALE 1 DOSE 3-4 TIMES A DAY AS REQURIED
     Dates: start: 20140813
  22. ASPIRIN. [Concomitant]
     Active Substance: ASPIRIN
     Dosage: 75 MG, QD
     Dates: start: 20150528
  23. TIOTROPIUM BROMIDE [Concomitant]
     Active Substance: TIOTROPIUM BROMIDE
     Indication: ASTHMA
     Dosage: 18 ?G, QD
     Route: 055
     Dates: start: 20140813
  24. FOLIC ACID. [Concomitant]
     Active Substance: FOLIC ACID
     Dosage: 5 MG, QD
     Dates: start: 20140813
  25. PREMARIN [Concomitant]
     Active Substance: ESTROGENS, CONJUGATED
     Indication: HORMONE REPLACEMENT THERAPY
     Dosage: 0.625 MG, QD
     Dates: start: 20140813
  26. ALENDRONIC ACID [Concomitant]
     Active Substance: ALENDRONIC ACID
     Dosage: 70 MG, QW
     Dates: start: 20150528
  27. MACROGOL [Concomitant]
     Active Substance: POLYETHYLENE GLYCOLS
     Dosage: 1 DF, BID
     Dates: start: 20140115
  28. SYMBICORT [Concomitant]
     Active Substance: BUDESONIDE\FORMOTEROL FUMARATE DIHYDRATE
     Indication: ASTHMA
     Dosage: 4 DF, BID (AND IN THE AFTERNOON IF NEEDED)
     Dates: start: 20140813
  29. HYDROXOCOBALAMIN [Concomitant]
     Active Substance: HYDROXOCOBALAMIN
     Dosage: 1 MG, UNK
     Dates: start: 20140813

REACTIONS (12)
  - Transient ischaemic attack [Unknown]
  - Eye swelling [Recovered/Resolved]
  - Drug interaction [Unknown]
  - Status asthmaticus [Unknown]
  - Acidosis [Recovered/Resolved]
  - Headache [Not Recovered/Not Resolved]
  - Temporal arteritis [Unknown]
  - Skin hypertrophy [Recovered/Resolved]
  - Swelling face [Recovered/Resolved]
  - Diplopia [Not Recovered/Not Resolved]
  - Abdominal distension [Recovered/Resolved]
  - Asthenia [Recovered/Resolved]
